FAERS Safety Report 16599097 (Version 1)
Quarter: 2019Q3

REPORT INFORMATION
  Report Type: Spontaneous
  Country: FR (occurrence: FR)
  Receive Date: 20190719
  Receipt Date: 20190719
  Transmission Date: 20191004
  Serious: Yes (Hospitalization)
  Sender: FDA-Public Use
  Company Number: FR-TEVA-2019-FR-1079010

PATIENT
  Age: 71 Year
  Sex: Male
  Weight: 76 kg

DRUGS (4)
  1. ESIDREX [Suspect]
     Active Substance: HYDROCHLOROTHIAZIDE
     Indication: HYPERTENSION
     Dosage: 1DOSAGE FORMS PER DAY
     Route: 048
     Dates: end: 20180829
  2. COLCHICINE OPOCALCIUM 1 MG, COMPRIM? [Suspect]
     Active Substance: COLCHICINE
     Indication: GOUT
     Dosage: 0.5DOSAGE FORMS PER DAY
     Route: 048
     Dates: start: 20180819, end: 20180826
  3. ENALAPRIL (MALEATE D^) [Suspect]
     Active Substance: ENALAPRIL MALEATE
     Indication: HYPERTENSION
     Dosage: 20MG PER DAY
     Route: 048
     Dates: end: 20180829
  4. FUROSEMIDE ARROW 40 MG, COMPRIM? S?CABLE [Suspect]
     Active Substance: FUROSEMIDE
     Indication: HYPERTENSION
     Dosage: 1DOSAGE FORMS PER DAY
     Route: 048
     Dates: end: 20180829

REACTIONS (1)
  - Acute kidney injury [Recovered/Resolved]

NARRATIVE: CASE EVENT DATE: 20180829
